FAERS Safety Report 9555242 (Version 1)
Quarter: 2013Q3

REPORT INFORMATION
  Report Type: Spontaneous
  Country: US (occurrence: None)
  Receive Date: 20130805
  Receipt Date: 20130805
  Transmission Date: 20140515
  Serious: Yes (Other)
  Sender: FDA-Public Use
  Company Number: OPCR20130222

PATIENT
  Age: 68 Year
  Sex: Female

DRUGS (3)
  1. OPANA ER [Suspect]
     Indication: BACK PAIN
     Route: 048
     Dates: start: 20130502
  2. OPANA ER [Suspect]
     Indication: ARTHRALGIA
     Route: 048
     Dates: start: 20130502
  3. FENTANYL PATCH (FENTANYL) (POULTICE OR PATCH) (FENTANYL) [Concomitant]

REACTIONS (3)
  - Drug diversion [None]
  - Drug abuse [None]
  - Somnolence [None]
